FAERS Safety Report 19454919 (Version 1)
Quarter: 2021Q2

REPORT INFORMATION
  Report Type: Spontaneous
  Country: GR (occurrence: GR)
  Receive Date: 20210623
  Receipt Date: 20210623
  Transmission Date: 20210717
  Serious: Yes (Other)
  Sender: FDA-Public Use
  Company Number: GR-PFIZER INC-2021734307

PATIENT
  Age: 90 Year
  Sex: Female

DRUGS (3)
  1. ZURCAZOL [Suspect]
     Active Substance: PANTOPRAZOLE SODIUM
     Indication: ABDOMINAL PAIN UPPER
     Dosage: 40 MILLIGRAM
     Route: 048
     Dates: start: 20210610
  2. GLUCOPHAGE [Concomitant]
     Active Substance: METFORMIN HYDROCHLORIDE
     Indication: DIABETES MELLITUS
     Dosage: UNK
  3. DIOVAN [Concomitant]
     Active Substance: VALSARTAN
     Indication: HYPERTENSION
     Dosage: UNK

REACTIONS (5)
  - Anxiety [Unknown]
  - Angina pectoris [Unknown]
  - Heart rate decreased [Unknown]
  - Prescription drug used without a prescription [Unknown]
  - Panic attack [Unknown]

NARRATIVE: CASE EVENT DATE: 20210610
